FAERS Safety Report 25766447 (Version 2)
Quarter: 2025Q3

REPORT INFORMATION
  Report Type: Spontaneous
  Country: GB (occurrence: GB)
  Receive Date: 20250905
  Receipt Date: 20250911
  Transmission Date: 20251021
  Serious: Yes (Death)
  Sender: MALLINCKRODT
  Company Number: GB-MALLINCKRODT-MNK202505440

PATIENT
  Age: 18 Month
  Sex: Male
  Weight: 15 kg

DRUGS (1)
  1. UVADEX [Suspect]
     Active Substance: METHOXSALEN
     Indication: Acute graft versus host disease
     Route: 050

REACTIONS (3)
  - Wiskott-Aldrich syndrome [Fatal]
  - Condition aggravated [Fatal]
  - Drug effective for unapproved indication [Unknown]
